FAERS Safety Report 13041567 (Version 1)
Quarter: 2016Q4

REPORT INFORMATION
  Report Type: Spontaneous
  Country: JP (occurrence: JP)
  Receive Date: 20161219
  Receipt Date: 20161219
  Transmission Date: 20170207
  Serious: Yes (Death)
  Sender: FDA-Public Use
  Company Number: JP-ELI_LILLY_AND_COMPANY-JP201612006810

PATIENT
  Sex: Female
  Weight: 46 kg

DRUGS (4)
  1. LANSOPRAZOLE. [Concomitant]
     Active Substance: LANSOPRAZOLE
     Indication: GASTRIC HAEMORRHAGE
     Dosage: 15 MG, QD
     Route: 048
     Dates: start: 20160409, end: 20161105
  2. CYMBALTA [Suspect]
     Active Substance: DULOXETINE HYDROCHLORIDE
     Indication: PROPHYLAXIS
     Dosage: 20 MG, QD
     Route: 048
     Dates: start: 20160602, end: 20161103
  3. TS-1 [Concomitant]
     Active Substance: GIMERACIL\OTERACIL\TEGAFUR
     Indication: GASTRIC CANCER
     Dosage: 100 MG, UNK
     Route: 048
     Dates: start: 20160421, end: 20161013
  4. ELPLAT [Concomitant]
     Active Substance: OXALIPLATIN
     Indication: GASTRIC CANCER
     Dosage: 170 MG, UNK
     Route: 042
     Dates: start: 20160421, end: 20160929

REACTIONS (1)
  - Malignant neoplasm progression [Fatal]
